FAERS Safety Report 9458215 (Version 1)
Quarter: 2013Q3

REPORT INFORMATION
  Report Type: Spontaneous
  Country: US (occurrence: None)
  Receive Date: 20130812
  Receipt Date: 20130812
  Transmission Date: 20140515
  Serious: Yes (Other)
  Sender: FDA-Public Use
  Company Number: AG-2012-1749

PATIENT
  Age: 76 Year
  Sex: Male
  Weight: 77.3 kg

DRUGS (2)
  1. CHLORAMBUCIL (CHLORAMBUCIL) (UNKNOWN) [Suspect]
     Indication: CHRONIC LYMPHOCYTIC LEUKAEMIA
     Route: 048
     Dates: start: 20120917, end: 20120926
  2. SOLUMEDROL [Suspect]
     Indication: CHRONIC LYMPHOCYTIC LEUKAEMIA
     Route: 042
     Dates: start: 20120917, end: 20120919

REACTIONS (4)
  - Pancytopenia [None]
  - Confusional state [None]
  - Asthenia [None]
  - Treatment failure [None]
